FAERS Safety Report 11394431 (Version 1)
Quarter: 2015Q3

REPORT INFORMATION
  Report Type: Spontaneous
  Country: DE (occurrence: DE)
  Receive Date: 20150819
  Receipt Date: 20150819
  Transmission Date: 20151125
  Serious: Yes (Other)
  Sender: FDA-Public Use
  Company Number: DE-JNJFOC-20150808282

PATIENT
  Age: 49 Year
  Sex: Male

DRUGS (7)
  1. INFLIXIMAB, RECOMBINANT [Suspect]
     Active Substance: INFLIXIMAB
     Indication: COLITIS ULCERATIVE
     Dosage: AT WEEKS 0, 2 AND 6.
     Route: 042
  2. VITAMIN D [Concomitant]
     Active Substance: CHOLECALCIFEROL
     Route: 065
  3. BUDESONIDE. [Concomitant]
     Active Substance: BUDESONIDE
     Route: 054
  4. CALCIUM [Concomitant]
     Active Substance: CALCIUM
     Route: 065
  5. MESALAMINE. [Concomitant]
     Active Substance: MESALAMINE
     Route: 048
  6. AZATHIOPRINE. [Concomitant]
     Active Substance: AZATHIOPRINE
     Route: 065
  7. MESALAMINE. [Concomitant]
     Active Substance: MESALAMINE
     Route: 048

REACTIONS (2)
  - Drug ineffective [Unknown]
  - Linear IgA disease [Recovering/Resolving]
